FAERS Safety Report 7895369-X (Version None)
Quarter: 2011Q4

REPORT INFORMATION
  Report Type: 
  Country: None (occurrence: None)
  Receive Date: 20111106
  Receipt Date: 20110825
  Transmission Date: 20120403
  Serious: No
  Sender: FDA-Public Use
  Company Number: US-AMGEN-USASP2011043496

PATIENT
  Age: 46 Year
  Sex: Male

DRUGS (1)
  1. ENBREL [Suspect]
     Indication: PSORIATIC ARTHROPATHY
     Dosage: 50 MG, 2 TIMES/WK
     Dates: start: 20110712

REACTIONS (5)
  - ARTHRALGIA [None]
  - LABYRINTHITIS [None]
  - MUSCULOSKELETAL STIFFNESS [None]
  - DIZZINESS [None]
  - TOOTHACHE [None]
